FAERS Safety Report 9617895 (Version 1)
Quarter: 2013Q4

REPORT INFORMATION
  Report Type: Report from Study
  Country: GB (occurrence: GB)
  Receive Date: 20131011
  Receipt Date: 20131011
  Transmission Date: 20140711
  Serious: Yes (Other)
  Sender: FDA-Public Use
  Company Number: GB-BAXTER-2013BAX040211

PATIENT
  Sex: 0

DRUGS (4)
  1. FLUDARABINE [Suspect]
     Indication: B-CELL LYMPHOMA
     Dosage: ON DAYS 1 TO 3
     Route: 042
  2. OBINUTUZUMAB [Suspect]
     Indication: B-CELL LYMPHOMA
     Dosage: ON DAYS 1 AND 8 OF CYCLE 1
     Route: 042
  3. OBINUTUZUMAB [Suspect]
     Dosage: ON DAY 1 OF SUBSEQUENT CYCLES
     Route: 042
  4. CYCLOPHOSPHAMIDE INJECTION 1G [Suspect]
     Indication: B-CELL LYMPHOMA
     Dosage: DAYS 1 TO 3
     Route: 042

REACTIONS (1)
  - Infusion related reaction [Unknown]
